FAERS Safety Report 6985807-9 (Version None)
Quarter: 2010Q3

REPORT INFORMATION
  Report Type: 
  Country: None (occurrence: None)
  Receive Date: 20100915
  Receipt Date: 20100901
  Transmission Date: 20110219
  Serious: Yes (Other)
  Sender: FDA-Public Use
  Company Number: PHHY2010US53016

PATIENT
  Sex: Female

DRUGS (2)
  1. GLEEVEC [Suspect]
     Indication: CHRONIC MYELOID LEUKAEMIA
     Dosage: 100 MG, QD
     Route: 048
     Dates: start: 20090810
  2. GLEEVEC [Suspect]
     Dosage: 100 MG ONCE A DAY FOR TWO CONSECUTIVE DAYS AND THEN SKIP A DAY
     Route: 048

REACTIONS (6)
  - FATIGUE [None]
  - MUSCLE SPASMS [None]
  - PLATELET COUNT DECREASED [None]
  - SOMNOLENCE [None]
  - THROMBOCYTOSIS [None]
  - WHITE BLOOD CELL COUNT DECREASED [None]
